FAERS Safety Report 9765210 (Version 1)
Quarter: 2013Q4

REPORT INFORMATION
  Report Type: Spontaneous
  Country: US (occurrence: US)
  Receive Date: 20131217
  Receipt Date: 20131217
  Transmission Date: 20140711
  Serious: No
  Sender: FDA-Public Use
  Company Number: US-GLAXOSMITHKLINE-A1031224A

PATIENT
  Age: 82 Year
  Sex: Female

DRUGS (2)
  1. SORIATANE [Suspect]
     Indication: SKIN CANCER
     Dosage: 10MG PER DAY
     Route: 048
     Dates: start: 20130624, end: 20130704
  2. NO CONCURRENT MEDICATION [Concomitant]

REACTIONS (2)
  - Nausea [Not Recovered/Not Resolved]
  - Off label use [Unknown]
